FAERS Safety Report 7054344-8 (Version None)
Quarter: 2010Q4

REPORT INFORMATION
  Report Type: 
  Country: None (occurrence: None)
  Receive Date: 20101015
  Receipt Date: 20101003
  Transmission Date: 20110411
  Serious: Yes (Other)
  Sender: FDA-Public Use
  Company Number: CL-252-2010

PATIENT
  Age: 76 Year
  Sex: Female

DRUGS (1)
  1. CIPROFLOXACIN [Suspect]
     Indication: OROPHARYNGEAL PAIN
     Dosage: ORAL
     Route: 048

REACTIONS (2)
  - COLLAPSE OF LUNG [None]
  - FOREIGN BODY ASPIRATION [None]
